APPROVED DRUG PRODUCT: POTASSIUM CHLORIDE
Active Ingredient: POTASSIUM CHLORIDE
Strength: 20MEQ/15ML
Dosage Form/Route: SOLUTION;ORAL
Application: N206814 | Product #001 | TE Code: AA
Applicant: GENUS LIFE SCIENCES INC
Approved: Dec 22, 2014 | RLD: Yes | RS: No | Type: RX

PATENTS:
Patent 12539314 | Expires: Mar 7, 2039